FAERS Safety Report 8770287 (Version 1)
Quarter: 2012Q4

REPORT INFORMATION
  Report Type: 
  Country: US (occurrence: US)
  Receive Date: 20120904
  Receipt Date: 20120904
  Transmission Date: 20130627
  Serious: Yes (Hospitalization)
  Sender: FDA-Public Use
  Company Number: US-ELI_LILLY_AND_COMPANY-US201208002752

PATIENT
  Sex: Male

DRUGS (2)
  1. EFFIENT [Suspect]
     Dosage: 10 mg, qd
     Route: 048
  2. ASPIRIN [Concomitant]

REACTIONS (3)
  - Haemorrhage urinary tract [Recovered/Resolved with Sequelae]
  - Retroperitoneal haematoma [Recovered/Resolved with Sequelae]
  - Urinoma [Recovered/Resolved with Sequelae]
